FAERS Safety Report 21157224 (Version 4)
Quarter: 2023Q1

REPORT INFORMATION
  Report Type: Spontaneous
  Country: US (occurrence: US)
  Receive Date: 20220801
  Receipt Date: 20230206
  Transmission Date: 20230418
  Serious: Yes (Other)
  Sender: FDA-Public Use
  Company Number: US-PFIZER INC-202201018480

PATIENT
  Age: 69 Year
  Sex: Female
  Weight: 88.9 kg

DRUGS (6)
  1. XELJANZ XR [Suspect]
     Active Substance: TOFACITINIB CITRATE
     Indication: Arthritis
     Dosage: 11 MG, 1X/DAY
  2. LISINOPRIL [Concomitant]
     Active Substance: LISINOPRIL
     Indication: Fluid retention
     Dosage: 20 MG
  3. LISINOPRIL [Concomitant]
     Active Substance: LISINOPRIL
     Indication: Hypertension
     Dosage: 25 MG
  4. SPIRONOLACTONE [Concomitant]
     Active Substance: SPIRONOLACTONE
     Indication: Fluid retention
     Dosage: 50 MG ONE TIME A DAY
     Dates: start: 202204
  5. SPIRONOLACTONE [Concomitant]
     Active Substance: SPIRONOLACTONE
     Indication: Hypertension
  6. LEFLUNOMIDE [Concomitant]
     Active Substance: LEFLUNOMIDE
     Dosage: 10 MG (8 PILLS OF 10 MG)

REACTIONS (10)
  - Hip fracture [Unknown]
  - Fall [Unknown]
  - Arthritis [Not Recovered/Not Resolved]
  - Arthralgia [Unknown]
  - Musculoskeletal chest pain [Unknown]
  - Product prescribing error [Unknown]
  - Hypoaesthesia [Unknown]
  - Paraesthesia [Unknown]
  - Arthralgia [Unknown]
  - Sensitivity to weather change [Unknown]

NARRATIVE: CASE EVENT DATE: 20220101
